FAERS Safety Report 23068851 (Version 1)
Quarter: 2023Q4

REPORT INFORMATION
  Report Type: Spontaneous
  Country: RU (occurrence: None)
  Receive Date: 20231016
  Receipt Date: 20231016
  Transmission Date: 20240110
  Serious: Yes (Other)
  Sender: FDA-Public Use
  Company Number: RU-ROCHE-3436978

PATIENT
  Age: 4 Year
  Sex: Male
  Weight: 20.5 kg

DRUGS (1)
  1. RISDIPLAM [Suspect]
     Active Substance: RISDIPLAM
     Indication: Spinal muscular atrophy
     Dosage: (6.6 ML)
     Route: 065
     Dates: start: 202201

REACTIONS (6)
  - Optic atrophy [Unknown]
  - Hepatosplenomegaly [Unknown]
  - Kyphoscoliosis [Unknown]
  - Muscular weakness [Unknown]
  - Joint contracture [Unknown]
  - Motor developmental delay [Unknown]

NARRATIVE: CASE EVENT DATE: 20220101
